FAERS Safety Report 8440894-6 (Version None)
Quarter: 2012Q2

REPORT INFORMATION
  Report Type: 
  Country: None (occurrence: None)
  Receive Date: 20120615
  Receipt Date: 20120606
  Transmission Date: 20120825
  Serious: Yes (Hospitalization)
  Sender: FDA-Public Use
  Company Number: BR-ASTRAZENECA-2012SE38487

PATIENT
  Age: 74 Year
  Sex: Female
  Weight: 62 kg

DRUGS (3)
  1. MANY UNKNOWN MEDICATIONS [Concomitant]
  2. CRESTOR [Suspect]
     Indication: BLOOD CHOLESTEROL INCREASED
     Route: 048
  3. NEXIUM [Suspect]
     Route: 048
     Dates: start: 20110101, end: 20110101

REACTIONS (4)
  - WEIGHT INCREASED [None]
  - MYOCARDIAL INFARCTION [None]
  - PNEUMONIA [None]
  - CANDIDIASIS [None]
